FAERS Safety Report 15931597 (Version 4)
Quarter: 2019Q1

REPORT INFORMATION
  Report Type: Other
  Country: DE (occurrence: DE)
  Receive Date: 20190207
  Receipt Date: 20190327
  Transmission Date: 20190417
  Serious: Yes (Other)
  Sender: FDA-Public Use
  Company Number: DE-ASTELLAS-2019US004190

PATIENT
  Age: 57 Year
  Sex: Female
  Weight: 61 kg

DRUGS (3)
  1. VESIKUR [Suspect]
     Active Substance: SOLIFENACIN SUCCINATE
     Indication: STRESS URINARY INCONTINENCE
  2. BOOSTRIX [Concomitant]
     Active Substance: TETANUS TOXOID, REDUCED DIPHTHERIA TOXOID AND ACELLULAR PERTUSSIS VACCINE, ADSORBED ANTIGENS
     Indication: IMMUNISATION
     Dosage: UNK UNK, UNKNOWN FREQ.
     Route: 065
     Dates: start: 20190116
  3. VESIKUR [Suspect]
     Active Substance: SOLIFENACIN SUCCINATE
     Indication: URGE INCONTINENCE
     Route: 048
     Dates: start: 20190116, end: 20190128

REACTIONS (5)
  - General physical health deterioration [Unknown]
  - Headache [Recovering/Resolving]
  - Product use in unapproved indication [Unknown]
  - Feeling abnormal [Recovering/Resolving]
  - Hepatitis toxic [Not Recovered/Not Resolved]

NARRATIVE: CASE EVENT DATE: 20190116
